FAERS Safety Report 23652226 (Version 1)
Quarter: 2024Q1

REPORT INFORMATION
  Report Type: Spontaneous
  Country: US (occurrence: US)
  Receive Date: 20240320
  Receipt Date: 20240320
  Transmission Date: 20240409
  Serious: Yes (Life-Threatening, Hospitalization)
  Sender: FDA-Public Use
  Company Number: US-MYLANLABS-2024M1024383

PATIENT
  Age: 1 Year
  Sex: Female

DRUGS (9)
  1. BUSULFAN [Suspect]
     Active Substance: BUSULFAN
     Indication: Prophylaxis against transplant rejection
     Dosage: UNK
     Route: 065
  2. MELPHALAN [Suspect]
     Active Substance: MELPHALAN
     Indication: Prophylaxis against transplant rejection
     Dosage: UNK
     Route: 065
  3. METHYLPREDNISOLONE [Suspect]
     Active Substance: METHYLPREDNISOLONE
     Indication: Drug eruption
     Dosage: 0.5 MILLIGRAM/KILOGRAM, Q6H
     Route: 065
  4. THYMOCYTE IMMUNE GLOBULIN NOS [Suspect]
     Active Substance: THYMOCYTE IMMUNE GLOBULIN NOS
     Indication: Prophylaxis against transplant rejection
     Dosage: UNK
     Route: 065
  5. THIOTEPA [Suspect]
     Active Substance: THIOTEPA
     Indication: Prophylaxis against transplant rejection
     Dosage: UNK
     Route: 065
  6. CYCLOPHOSPHAMIDE [Suspect]
     Active Substance: CYCLOPHOSPHAMIDE
     Indication: Prophylaxis against transplant rejection
     Dosage: UNK
     Route: 065
  7. RITUXIMAB [Suspect]
     Active Substance: RITUXIMAB
     Indication: Prophylaxis against transplant rejection
     Dosage: UNK
     Route: 065
  8. VITAMIN A [Concomitant]
     Active Substance: VITAMIN A
     Indication: Measles post vaccine
     Dosage: 400000 INTERNATIONAL UNIT, IN EQUALLY DIVIDED DOSES
     Route: 030
  9. Immunoglobulin [Concomitant]
     Indication: Hypogammaglobulinaemia
     Dosage: 400 MILLIGRAM/KILOGRAM
     Route: 042

REACTIONS (4)
  - Subacute sclerosing panencephalitis [Recovering/Resolving]
  - Respiratory failure [Recovering/Resolving]
  - Atrophy [Unknown]
  - Off label use [Unknown]
